FAERS Safety Report 6283639-0 (Version None)
Quarter: 2009Q3

REPORT INFORMATION
  Report Type: 
  Country: None (occurrence: None)
  Receive Date: 20090724
  Receipt Date: 20090716
  Transmission Date: 20100115
  Serious: Yes (Hospitalization, Other)
  Sender: FDA-Public Use
  Company Number: PHEH2009US04918

PATIENT
  Sex: Female

DRUGS (3)
  1. TEGRETOL-XR [Suspect]
     Dosage: UNK
     Route: 048
     Dates: start: 20090407, end: 20090407
  2. AMITRIPTYLINE HCL [Interacting]
     Dosage: UNK, UNK
  3. ATARAX [Concomitant]
     Dosage: UNK, UNK

REACTIONS (3)
  - BURNS THIRD DEGREE [None]
  - PAIN [None]
  - RASH [None]
